FAERS Safety Report 9142731 (Version 1)
Quarter: 2013Q1

REPORT INFORMATION
  Report Type: Spontaneous
  Country: US (occurrence: US)
  Receive Date: 20130306
  Receipt Date: 20130306
  Transmission Date: 20140127
  Serious: No
  Sender: FDA-Public Use
  Company Number: US-ENDO PHARMACEUTICALS INC.-OPIR20100043

PATIENT
  Sex: Female
  Weight: 56.75 kg

DRUGS (2)
  1. OPANA [Suspect]
     Indication: PAIN
     Dosage: 5 MG
     Route: 048
  2. OPANA ER [Suspect]
     Indication: PAIN
     Dosage: 10 MG
     Route: 048

REACTIONS (2)
  - Anorgasmia [Unknown]
  - Feeling abnormal [Unknown]
